FAERS Safety Report 5241870-7 (Version None)
Quarter: 2007Q1

REPORT INFORMATION
  Report Type: 
  Country: None (occurrence: None)
  Receive Date: 20070220
  Receipt Date: 20070214
  Transmission Date: 20070707
  Serious: Yes (Other)
  Sender: FDA-Public Use
  Company Number: JP-PFIZER INC-2007012572

PATIENT

DRUGS (2)
  1. ATARAX [Suspect]
     Route: 048
  2. TALION [Concomitant]

REACTIONS (1)
  - OEDEMA PERIPHERAL [None]
